FAERS Safety Report 14196940 (Version 2)
Quarter: 2017Q4

REPORT INFORMATION
  Report Type: Report from Study
  Country: US (occurrence: HU)
  Receive Date: 20171116
  Receipt Date: 20171220
  Transmission Date: 20180321
  Serious: Yes (Other)
  Sender: FDA-Public Use
  Company Number: US-SUNOVION-2017SUN004937

PATIENT

DRUGS (2)
  1. COVEREX [Concomitant]
     Indication: PRODUCT USED FOR UNKNOWN INDICATION
     Route: 065
  2. INDACATEROL AND GLYCOPYRROLATE [Suspect]
     Active Substance: GLYCOPYRROLATE\INDACATEROL MALEATE
     Indication: CHRONIC OBSTRUCTIVE PULMONARY DISEASE
     Dosage: 1 DF, QD, CAPSULE; REGIMEN #1
     Route: 055
     Dates: start: 20171025

REACTIONS (4)
  - Feeling abnormal [Unknown]
  - Speech disorder [Unknown]
  - Listless [Unknown]
  - Paralysis [Unknown]
